FAERS Safety Report 4718862-7 (Version None)
Quarter: 2005Q3

REPORT INFORMATION
  Report Type: 
  Country: None (occurrence: None)
  Receive Date: 20050720
  Receipt Date: 20050706
  Transmission Date: 20060218
  Serious: Yes (Death)
  Sender: FDA-Public Use
  Company Number: 2005099620

PATIENT
  Age: 65 Year
  Sex: Male

DRUGS (9)
  1. LIPITOR [Suspect]
     Indication: HYPERLIPIDAEMIA
     Dosage: 5 MG (DAILY), ORAL
     Route: 048
  2. DEPAS (ETIZOLAM) [Concomitant]
  3. LOXOPROFEN SODIUM (LOXOPROFEN SODIUM) [Concomitant]
  4. CARVEDILOL [Concomitant]
  5. GAMALIL (TIAPRIDE HYDROCHLORIDE) [Concomitant]
  6. AMITRIPTYLINE HYDROCHLORIDE [Concomitant]
  7. SELBEX (TEPRENONE) [Concomitant]
  8. ASPIRIN [Concomitant]
  9. UBRETID (DISTIGMINE BROMIDE) [Concomitant]

REACTIONS (3)
  - AMNESIA [None]
  - CEREBRAL INFARCTION [None]
  - DISEASE RECURRENCE [None]
